FAERS Safety Report 17149000 (Version 1)
Quarter: 2019Q4

REPORT INFORMATION
  Report Type: Report from Study
  Country: None (occurrence: BE)
  Receive Date: 20191213
  Receipt Date: 20191213
  Transmission Date: 20200122
  Serious: Yes (Hospitalization)
  Sender: FDA-Public Use
  Company Number: BE-ABBVIE-18K-013-2301526-00

PATIENT
  Age: 56 Year
  Sex: Female

DRUGS (10)
  1. DUODOPA [Suspect]
     Active Substance: CARBIDOPA\LEVODOPA
     Dosage: MD=3.5ML; CD=3.2 (AM)-3.4 (PM)ML/HR DURING 16HRS; ED=1.5ML
     Route: 050
     Dates: start: 20180927, end: 20181217
  2. DUODOPA [Suspect]
     Active Substance: CARBIDOPA\LEVODOPA
     Dosage: MD=3.5ML CD=3.4ML/HR DURING 16HRS ED=1.7ML
     Route: 050
     Dates: start: 20190404, end: 20190829
  3. DUODOPA [Suspect]
     Active Substance: CARBIDOPA\LEVODOPA
     Indication: PARKINSON^S DISEASE
     Dosage: MD=3ML; CD=1.4ML/HR DURING 16HRS ;ED=0.5ML
     Route: 050
     Dates: start: 20170606, end: 20170609
  4. DUODOPA [Suspect]
     Active Substance: CARBIDOPA\LEVODOPA
     Dosage: DOSES CONTINUOUSLY MONITORED AND ADAPTED
     Route: 050
     Dates: start: 20170609, end: 20171018
  5. DUODOPA [Suspect]
     Active Substance: CARBIDOPA\LEVODOPA
     Dosage: MD=3.5ML CD=3.4ML/HR DURING 16HRS ED=2ML
     Route: 050
     Dates: start: 20190401, end: 20190404
  6. DUODOPA [Suspect]
     Active Substance: CARBIDOPA\LEVODOPA
     Dosage: MD=3.5ML, CD=3.1ML/HR DURING 16HRS, ED=1.9ML
     Route: 050
     Dates: start: 20190829, end: 20191206
  7. DUODOPA [Suspect]
     Active Substance: CARBIDOPA\LEVODOPA
     Dosage: MD=3.5ML, CD=2.8ML/HR DURING 16HRS, ED=1.9ML
     Route: 050
     Dates: start: 20191206
  8. DUODOPA [Suspect]
     Active Substance: CARBIDOPA\LEVODOPA
     Dosage: MD=3.5ML; CD=2.9ML/HR DURING 16HRS; ED=1.5ML
     Route: 050
     Dates: start: 20171018, end: 20180605
  9. DUODOPA [Suspect]
     Active Substance: CARBIDOPA\LEVODOPA
     Dosage: MD=3.5ML, CD=3ML/HR DURING 16HRS, ED=1.5ML, ND=1ML/HR DURING 8HRS
     Route: 050
     Dates: start: 20180605, end: 20180927
  10. DUODOPA [Suspect]
     Active Substance: CARBIDOPA\LEVODOPA
     Dosage: MD= 3.5ML CD= 3.4ML/HR DURING 16HRS ED= 1.5ML
     Route: 050
     Dates: start: 20181217, end: 20190401

REACTIONS (23)
  - Underdose [Unknown]
  - Tremor [Recovered/Resolved]
  - Musculoskeletal stiffness [Not Recovered/Not Resolved]
  - Multiple use of single-use product [Recovered/Resolved]
  - Freezing phenomenon [Recovered/Resolved]
  - Malaise [Unknown]
  - Dyskinesia [Not Recovered/Not Resolved]
  - Fall [Recovered/Resolved]
  - Abdominal pain [Unknown]
  - Musculoskeletal stiffness [Recovering/Resolving]
  - Freezing phenomenon [Not Recovered/Not Resolved]
  - Hyperkinesia [Unknown]
  - Headache [Unknown]
  - Intestinal fistula [Unknown]
  - Mobility decreased [Recovering/Resolving]
  - Therapeutic product effect variable [Unknown]
  - Pain [Unknown]
  - Gait disturbance [Unknown]
  - Muscle contracture [Recovering/Resolving]
  - Tremor [Not Recovered/Not Resolved]
  - Therapeutic product effect incomplete [Not Recovered/Not Resolved]
  - Muscle rigidity [Unknown]
  - Balance disorder [Unknown]

NARRATIVE: CASE EVENT DATE: 201803
